FAERS Safety Report 8068140-6 (Version None)
Quarter: 2012Q1

REPORT INFORMATION
  Report Type: 
  Country: None (occurrence: None)
  Receive Date: 20120124
  Receipt Date: 20110928
  Transmission Date: 20120608
  Serious: No
  Sender: FDA-Public Use
  Company Number: US-AMGEN-USASP2011050155

PATIENT
  Age: 51 Year
  Sex: Female

DRUGS (4)
  1. ANALGESICS [Concomitant]
  2. FASLODEX [Concomitant]
  3. XGEVA [Suspect]
     Indication: METASTASES TO BONE
     Dosage: 120 MG, Q4WK
     Dates: start: 20110927
  4. XELODA [Concomitant]

REACTIONS (1)
  - COUGH [None]
